FAERS Safety Report 11546288 (Version 1)
Quarter: 2015Q3

REPORT INFORMATION
  Report Type: Report from Study
  Country: US (occurrence: US)
  Receive Date: 20150924
  Receipt Date: 20150924
  Transmission Date: 20151125
  Serious: Yes (Other)
  Sender: FDA-Public Use
  Company Number: US-JNJFOC-20150920565

PATIENT
  Sex: Male

DRUGS (9)
  1. FISH OIL [Concomitant]
     Active Substance: FISH OIL
  2. BACTRIM [Concomitant]
     Active Substance: SULFAMETHOXAZOLE\TRIMETHOPRIM
  3. METOPROLOL [Concomitant]
     Active Substance: METOPROLOL
  4. NORTRIPTYLINE [Concomitant]
     Active Substance: NORTRIPTYLINE
  5. ACYCLOVIR. [Concomitant]
     Active Substance: ACYCLOVIR
  6. NIFEDIPINE. [Concomitant]
     Active Substance: NIFEDIPINE
  7. VITAMIN D [Concomitant]
     Active Substance: CHOLECALCIFEROL
  8. HYDRALAZINE [Concomitant]
     Active Substance: HYDRALAZINE HYDROCHLORIDE
  9. IMBRUVICA [Suspect]
     Active Substance: IBRUTINIB
     Indication: CHRONIC LYMPHOCYTIC LEUKAEMIA
     Route: 048
     Dates: start: 20150428

REACTIONS (3)
  - Platelet count decreased [Unknown]
  - Thrombosis [Unknown]
  - Fatigue [Unknown]

NARRATIVE: CASE EVENT DATE: 2015
